FAERS Safety Report 7944680-2 (Version None)
Quarter: 2011Q4

REPORT INFORMATION
  Report Type: 
  Country: None (occurrence: None)
  Receive Date: 20111129
  Receipt Date: 20111121
  Transmission Date: 20120403
  Serious: Yes (Other)
  Sender: FDA-Public Use
  Company Number: JP-JNJFOC-20111009638

PATIENT
  Age: 87 Year
  Sex: Female

DRUGS (6)
  1. CANDESARTAN CILEXETIL [Suspect]
     Indication: HYPERTENSION
     Route: 048
     Dates: start: 20100107, end: 20110927
  2. RADEN [Concomitant]
     Indication: GASTRITIS
     Route: 048
  3. AMIODARONE HYDROCHLORIDE [Concomitant]
     Indication: VENTRICULAR TACHYCARDIA
     Route: 048
     Dates: start: 20091202
  4. LASIX [Concomitant]
     Indication: CARDIAC FAILURE
     Route: 048
  5. RISPERDAL [Suspect]
     Indication: DELUSION
     Route: 048
     Dates: start: 20110913, end: 20110927
  6. LEVOTHYROXINE SODIUM [Concomitant]
     Indication: HYPOTHYROIDISM
     Route: 048
     Dates: start: 20101013

REACTIONS (5)
  - DEPRESSED LEVEL OF CONSCIOUSNESS [None]
  - BLOOD SODIUM DECREASED [None]
  - RENAL IMPAIRMENT [None]
  - HYPERKALAEMIA [None]
  - URINARY RETENTION [None]
